FAERS Safety Report 12936988 (Version 3)
Quarter: 2019Q3

REPORT INFORMATION
  Report Type: Spontaneous
  Country: US (occurrence: US)
  Receive Date: 20161114
  Receipt Date: 20190709
  Transmission Date: 20191004
  Serious: Yes (Other)
  Sender: FDA-Public Use
  Company Number: US-ELI_LILLY_AND_COMPANY-US201611000922

PATIENT
  Sex: Male

DRUGS (7)
  1. CIALIS [Suspect]
     Active Substance: TADALAFIL
     Indication: ERECTILE DYSFUNCTION
     Dosage: UNK UNK, UNKNOWN
     Route: 065
     Dates: start: 1996, end: 2006
  2. LEVOTHYROXINE. [Concomitant]
     Active Substance: LEVOTHYROXINE
     Indication: THYROID DISORDER
     Dosage: UNK, UNKNOWN
     Route: 065
     Dates: start: 201012
  3. CIALIS [Suspect]
     Active Substance: TADALAFIL
     Dosage: 20 MG, PRN, AT LEAST TEN TIMES A MONTH
     Route: 065
     Dates: start: 20060223, end: 20160611
  4. VIAGRA [Suspect]
     Active Substance: SILDENAFIL CITRATE
     Indication: ERECTILE DYSFUNCTION
     Dosage: UNK UNK, UNKNOWN
     Route: 065
     Dates: start: 1996, end: 2006
  5. CIALIS [Suspect]
     Active Substance: TADALAFIL
     Dosage: 20 MG, PRN
     Route: 048
  6. KETOCONAZOLE. [Concomitant]
     Active Substance: KETOCONAZOLE
     Indication: DRY SKIN
     Dosage: UNK, UNKNOWN
     Route: 065
     Dates: start: 2014
  7. VIAGRA [Suspect]
     Active Substance: SILDENAFIL CITRATE
     Dosage: 100 MG, FIVE TIMES A MONTH
     Route: 065
     Dates: start: 20140219, end: 20140409

REACTIONS (7)
  - Malignant melanoma [Unknown]
  - Alcoholism [Unknown]
  - Depression [Unknown]
  - Deafness unilateral [Not Recovered/Not Resolved]
  - Ear pain [Unknown]
  - Neck pain [Unknown]
  - Hypoaesthesia [Unknown]

NARRATIVE: CASE EVENT DATE: 20130918
